FAERS Safety Report 7907433-7 (Version None)
Quarter: 2011Q4

REPORT INFORMATION
  Report Type: 
  Country: None (occurrence: None)
  Receive Date: 20111109
  Receipt Date: 20111109
  Transmission Date: 20120403
  Serious: Yes (Hospitalization)
  Sender: FDA-Public Use
  Company Number: None

PATIENT
  Age: 66 Year
  Sex: Male
  Weight: 72.7 kg

DRUGS (9)
  1. PEPCID [Concomitant]
  2. TEMODAR [Suspect]
     Indication: GLIOBLASTOMA MULTIFORME
     Dosage: TEMODAR 300 MG PO GLIADEL WAFERS 8 WAFERS IMPLANTED
     Route: 048
     Dates: start: 20100830, end: 20111004
  3. ACETAMINOPHEN [Concomitant]
  4. OSTEO BIFLEX [Concomitant]
  5. ASPIRIN [Concomitant]
  6. GLIADEL [Suspect]
     Indication: GLIOBLASTOMA MULTIFORME
     Dosage: 8 WAFERS IMPLANTED
     Dates: start: 20100804
  7. MULTI-VITAMIN [Concomitant]
  8. MIRALAX [Concomitant]
  9. NAPROXEN (ALEVE) [Concomitant]

REACTIONS (3)
  - ACQUIRED OESOPHAGEAL WEB [None]
  - ABDOMINAL PAIN UPPER [None]
  - HIATUS HERNIA [None]
